FAERS Safety Report 10142081 (Version 1)
Quarter: 2014Q2

REPORT INFORMATION
  Report Type: Spontaneous
  Country: US (occurrence: US)
  Receive Date: 20140429
  Receipt Date: 20140429
  Transmission Date: 20141212
  Serious: Yes (Hospitalization)
  Sender: FDA-Public Use
  Company Number: US-PFIZER INC-2014115483

PATIENT
  Age: 36 Year
  Sex: Female

DRUGS (2)
  1. VERAPAMIL HCL [Suspect]
     Dosage: UNK
     Route: 048
  2. PROPANOLOL HCL [Suspect]
     Dosage: UNK
     Route: 048

REACTIONS (6)
  - Intentional overdose [Unknown]
  - Cardiac arrest [Recovered/Resolved]
  - Hypotension [Recovered/Resolved]
  - Bradycardia [Recovered/Resolved]
  - Acute respiratory distress syndrome [Recovered/Resolved]
  - Encephalopathy [Recovered/Resolved]
